FAERS Safety Report 21292833 (Version 3)
Quarter: 2022Q4

REPORT INFORMATION
  Report Type: Spontaneous
  Country: TR (occurrence: TR)
  Receive Date: 20220905
  Receipt Date: 20221021
  Transmission Date: 20230113
  Serious: Yes (Hospitalization, Other)
  Sender: FDA-Public Use
  Company Number: TR-NOVOPROD-946191

PATIENT
  Age: 80 Year
  Sex: Female
  Weight: 63 kg

DRUGS (5)
  1. INSULIN ASPART [Suspect]
     Active Substance: INSULIN ASPART
     Indication: Type 2 diabetes mellitus
     Dosage: 3 IU
     Dates: start: 20220330, end: 20220330
  2. INSULIN ASPART [Suspect]
     Active Substance: INSULIN ASPART
     Dosage: 6 IU
     Dates: start: 20220331, end: 20220331
  3. INSULIN ASPART [Suspect]
     Active Substance: INSULIN ASPART
     Dosage: 30 U
     Dates: start: 20220610
  4. INSULIN ASPART [Suspect]
     Active Substance: INSULIN ASPART
     Dosage: 27 IU
     Dates: start: 20220513, end: 20220609
  5. INSULIN ASPART [Suspect]
     Active Substance: INSULIN ASPART
     Dosage: 3 IU
     Dates: start: 20220401, end: 20220405

REACTIONS (2)
  - Hyperglycaemia [Recovered/Resolved]
  - Device malfunction [Unknown]

NARRATIVE: CASE EVENT DATE: 20220501
